FAERS Safety Report 17823544 (Version 1)
Quarter: 2020Q2

REPORT INFORMATION
  Report Type: Spontaneous
  Country: US (occurrence: US)
  Receive Date: 20200524
  Receipt Date: 20200524
  Transmission Date: 20200714
  Serious: Yes (Life-Threatening)
  Sender: FDA-Public Use
  Company Number: None

PATIENT
  Age: 24 Year
  Sex: Female
  Weight: 50.4 kg

DRUGS (1)
  1. LESSINA [Suspect]
     Active Substance: ETHINYL ESTRADIOL\LEVONORGESTREL
     Indication: CONTRACEPTION
     Dosage: ?          QUANTITY:1 TABLET(S);?
     Route: 048
     Dates: start: 20200510, end: 20200520

REACTIONS (16)
  - Mood swings [None]
  - Crying [None]
  - Vision blurred [None]
  - Abdominal discomfort [None]
  - Anger [None]
  - Headache [None]
  - Feeling abnormal [None]
  - Aggression [None]
  - Anxiety [None]
  - Tremor [None]
  - Feeding disorder [None]
  - Decreased appetite [None]
  - Nausea [None]
  - Disturbance in attention [None]
  - Loss of employment [None]
  - Loss of personal independence in daily activities [None]

NARRATIVE: CASE EVENT DATE: 20200520
